FAERS Safety Report 8312321-0 (Version None)
Quarter: 2012Q2

REPORT INFORMATION
  Report Type: 
  Country: None (occurrence: None)
  Receive Date: 20120425
  Receipt Date: 20120423
  Transmission Date: 20120825
  Serious: Yes (Other)
  Sender: FDA-Public Use
  Company Number: ES-ROCHE-1058213

PATIENT
  Age: 62 Year
  Sex: Male

DRUGS (7)
  1. MYCOSTATIN [Suspect]
     Indication: RENAL TRANSPLANT
     Route: 048
     Dates: start: 20090417
  2. ADALAT [Suspect]
     Indication: RENAL TRANSPLANT
     Route: 048
     Dates: start: 20090417
  3. ATENOLOL [Suspect]
     Indication: RENAL TRANSPLANT
     Route: 048
     Dates: start: 20090417
  4. SEPTRA [Suspect]
     Indication: RENAL TRANSPLANT
     Route: 048
     Dates: start: 20090417
  5. PREDNISONE [Suspect]
     Indication: RENAL TRANSPLANT
     Route: 048
     Dates: start: 20090417
  6. TACROLIMUS [Suspect]
     Indication: RENAL TRANSPLANT
     Route: 048
     Dates: start: 20090417
  7. MYCOPHENOLATE MOFETIL (CELLCEPT) [Suspect]
     Indication: RENAL TRANSPLANT
     Route: 048
     Dates: start: 20090417

REACTIONS (2)
  - RETINAL DEGENERATION [None]
  - RETINAL NEOVASCULARISATION [None]
